FAERS Safety Report 24006188 (Version 1)
Quarter: 2024Q2

REPORT INFORMATION
  Report Type: Spontaneous
  Country: PL (occurrence: PL)
  Receive Date: 20240624
  Receipt Date: 20240624
  Transmission Date: 20240716
  Serious: Yes (Other)
  Sender: FDA-Public Use
  Company Number: PL-ABBVIE-5810246

PATIENT
  Age: 74 Year
  Sex: Male

DRUGS (11)
  1. VENETOCLAX [Suspect]
     Active Substance: VENETOCLAX
     Indication: Acute myeloid leukaemia
     Dosage: LAST ADMIN 2023
     Route: 048
     Dates: start: 20230913
  2. VENETOCLAX [Suspect]
     Active Substance: VENETOCLAX
     Indication: Acute myeloid leukaemia
     Dosage: 100 MG
     Route: 048
     Dates: start: 20231004
  3. METFORMIN HYDROCHLORIDE [Concomitant]
     Active Substance: METFORMIN HYDROCHLORIDE
     Indication: Product used for unknown indication
     Dosage: 1700 MILLIGRAM
  4. SITAGLIPTIN [Concomitant]
     Active Substance: SITAGLIPTIN
     Indication: Product used for unknown indication
     Dosage: 100 MILLIGRAM
  5. FIRMAGON [Concomitant]
     Active Substance: DEGARELIX ACETATE
     Indication: Product used for unknown indication
     Dosage: 80 MG
  6. ROSUVASTATIN [Concomitant]
     Active Substance: ROSUVASTATIN
     Indication: Product used for unknown indication
     Dosage: 10 MILLIGRAM
  7. TAMSULOSIN HYDROCHLORIDE [Concomitant]
     Active Substance: TAMSULOSIN HYDROCHLORIDE
     Indication: Product used for unknown indication
     Dosage: 0.4 MILLIGRAM
  8. Toptelmi hct [Concomitant]
     Indication: Product used for unknown indication
     Dosage: 80+25
  9. AZACITIDINE [Suspect]
     Active Substance: AZACITIDINE
     Indication: Acute myeloid leukaemia
     Route: 065
     Dates: start: 20231004
  10. AZACITIDINE [Suspect]
     Active Substance: AZACITIDINE
     Indication: Acute myeloid leukaemia
     Route: 065
     Dates: start: 20230913
  11. ALLOPURINOL [Concomitant]
     Active Substance: ALLOPURINOL
     Indication: Tumour lysis syndrome
     Dosage: 300 MILLIGRAM
     Dates: start: 2023

REACTIONS (9)
  - Pneumonia [Recovering/Resolving]
  - White blood cell count decreased [Unknown]
  - Lung consolidation [Recovering/Resolving]
  - Anaemia [Unknown]
  - Respiratory moniliasis [Recovering/Resolving]
  - Neutropenia [Unknown]
  - Neutropenia [Unknown]
  - Blood creatinine increased [Recovering/Resolving]
  - Thrombocytopenia [Unknown]

NARRATIVE: CASE EVENT DATE: 20230101
